FAERS Safety Report 5790147-X (Version None)
Quarter: 2008Q2

REPORT INFORMATION
  Report Type: 
  Country: None (occurrence: None)
  Receive Date: 20080626
  Receipt Date: 20080411
  Transmission Date: 20081010
  Serious: No
  Sender: FDA-Public Use
  Company Number: A0697706A

PATIENT
  Age: 26 Year
  Weight: 59.5 kg

DRUGS (1)
  1. ALLI [Suspect]
     Indication: DRUG USE FOR UNKNOWN INDICATION
     Route: 048
     Dates: start: 20071029

REACTIONS (21)
  - ANXIETY [None]
  - COUGH [None]
  - DRUG INEFFECTIVE [None]
  - FATIGUE [None]
  - FEELING ABNORMAL [None]
  - FREQUENT BOWEL MOVEMENTS [None]
  - GASTROINTESTINAL DISORDER [None]
  - HEADACHE [None]
  - HYPERSENSITIVITY [None]
  - ILL-DEFINED DISORDER [None]
  - INFLUENZA [None]
  - INSOMNIA [None]
  - MALAISE [None]
  - NASAL DISCOMFORT [None]
  - NASAL DRYNESS [None]
  - NASOPHARYNGITIS [None]
  - RECTAL DISCHARGE [None]
  - SINUS CONGESTION [None]
  - THERAPEUTIC RESPONSE UNEXPECTED [None]
  - WEIGHT FLUCTUATION [None]
  - WEIGHT INCREASED [None]
